FAERS Safety Report 6988011-3 (Version None)
Quarter: 2010Q3

REPORT INFORMATION
  Report Type: 
  Country: None (occurrence: None)
  Receive Date: 20100916
  Receipt Date: 20100907
  Transmission Date: 20110219
  Serious: Yes (Hospitalization)
  Sender: FDA-Public Use
  Company Number: US-ABBOTT-10P-163-0669838-00

PATIENT
  Age: 51 Year
  Sex: Female

DRUGS (14)
  1. HUMIRA [Suspect]
     Indication: CROHN'S DISEASE
     Route: 058
     Dates: start: 20091101
  2. IMURAN [Concomitant]
     Indication: CROHN'S DISEASE
  3. LEXAPRO [Concomitant]
     Indication: DEPRESSION
  4. VITAMIN B-12 [Concomitant]
     Indication: CROHN'S DISEASE
  5. ADDERALL 10 [Concomitant]
     Indication: ATTENTION DEFICIT/HYPERACTIVITY DISORDER
  6. ESTRODIAL [Concomitant]
     Indication: HORMONE REPLACEMENT THERAPY
  7. OMEPRAZOLE [Concomitant]
     Indication: GASTRIC PH DECREASED
  8. PREMARIN [Concomitant]
     Indication: PRODUCT USED FOR UNKNOWN INDICATION
  9. LABETALOL HCL [Concomitant]
     Indication: HYPERTENSION
  10. CALCIUM SUPPLEMENT [Concomitant]
     Indication: PRODUCT USED FOR UNKNOWN INDICATION
  11. MULTI-VITAMIN [Concomitant]
     Indication: PRODUCT USED FOR UNKNOWN INDICATION
  12. AMBIEN [Concomitant]
     Indication: PRODUCT USED FOR UNKNOWN INDICATION
  13. BENTYL [Concomitant]
     Indication: ABDOMINAL PAIN UPPER
     Dosage: 1 TO 2 CAPSULES EVERY 6 HOURS
  14. BENZONATATE [Concomitant]
     Indication: COUGH
     Dosage: AS REQUIRED

REACTIONS (8)
  - COUGH [None]
  - DYSPNOEA [None]
  - EYE IRRITATION [None]
  - EYE PAIN [None]
  - OROPHARYNGEAL PAIN [None]
  - RESPIRATORY TRACT INFECTION [None]
  - UPPER-AIRWAY COUGH SYNDROME [None]
  - WRONG TECHNIQUE IN DRUG USAGE PROCESS [None]
